FAERS Safety Report 21876894 (Version 1)
Quarter: 2023Q1

REPORT INFORMATION
  Report Type: Spontaneous
  Country: ES (occurrence: ES)
  Receive Date: 20230118
  Receipt Date: 20230118
  Transmission Date: 20230418
  Serious: Yes (Hospitalization, Other)
  Sender: FDA-Public Use
  Company Number: None

PATIENT
  Age: 84 Year
  Sex: Male
  Weight: 71 kg

DRUGS (14)
  1. FUROSEMIDE [Interacting]
     Active Substance: FUROSEMIDE
     Indication: Hypertension
     Dosage: 40 MG,  30 TABLETS
     Dates: start: 20220620
  2. OLANZAPINE [Interacting]
     Active Substance: OLANZAPINE
     Indication: Agitation
     Dosage: 30 MG, 28 TABLETS
     Dates: start: 20220622, end: 20220704
  3. AMILORIDE HYDROCHLORIDE\HYDROCHLOROTHIAZIDE [Interacting]
     Active Substance: AMILORIDE HYDROCHLORIDE\HYDROCHLOROTHIAZIDE
     Indication: Hypertension
     Dosage: STRENGTH : 5 MG/50 MG , 20 TABLETS, 1 TABLET,
     Dates: start: 20220620, end: 20220701
  4. FLUCONAZOLE [Interacting]
     Active Substance: FLUCONAZOLE
     Indication: Pneumonia
     Dosage: 200 MG, FLUCONAZOLE 100 MG INJECTION INFUSION 50 ML 1 BAG/VIAL
     Dates: start: 20220702, end: 20220704
  5. VANCOMYCIN [Concomitant]
     Active Substance: VANCOMYCIN
     Indication: Pneumonia
     Dosage: 1500 MILLIGRAM DAILY; INJECTABLE PERFUSION 1 VIAL, 1500MG/DAY
     Dates: start: 20220702, end: 20220706
  6. HIBOR [Concomitant]
     Indication: Prophylaxis
     Dosage: 2500, STRENGTH : 2,500 IU ANTI-XA/0.2 ML , 10 PRE-FILLED SYRINGES OF 0.2 ML
     Dates: start: 20220620, end: 20220718
  7. MAGNESIOBOI [Concomitant]
     Indication: Hypomagnesaemia
     Dosage: 4 DOSAGE FORMS DAILY; 4 TABLETS/DAY, 50 TABLETS
     Dates: start: 20220625, end: 20220704
  8. ATORVASTATIN [Concomitant]
     Active Substance: ATORVASTATIN
     Indication: Acute myocardial infarction
     Dosage: 80 MG,  28 TABLETS
     Dates: start: 20220620
  9. BOI-K ASPARTIC [Concomitant]
     Indication: Hypokalaemia
     Dosage: 2 DOSAGE FORMS DAILY;  20 TABLETS, 2 TABLETS/DAY
     Dates: start: 20220625, end: 20220704
  10. TICAGRELOR [Concomitant]
     Active Substance: TICAGRELOR
     Indication: Acute myocardial infarction
     Dosage: 180 MG
     Dates: start: 20220620
  11. PIPERACILLIN AND TAZOBACTAM [Concomitant]
     Active Substance: PIPERACILLIN SODIUM\TAZOBACTAM SODIUM
     Indication: Pneumonia
     Dosage: 4G/8 HOURS , STRENGTH : 2,000 MG/250 MG, 1 VIAL,
     Dates: start: 20220701, end: 20220709
  12. MELATONIN [Concomitant]
     Active Substance: MELATONIN
     Indication: Insomnia
     Dosage: 4 MG,  30 TABLETS
     Dates: start: 20220629, end: 20220718
  13. PANTOPRAZOLE [Concomitant]
     Active Substance: PANTOPRAZOLE
     Indication: Prophylaxis
     Dosage: 40 MG ,14 TABLETS
     Dates: start: 20220620, end: 20220718
  14. ASPIRIN [Concomitant]
     Active Substance: ASPIRIN
     Indication: Acute myocardial infarction
     Dosage: 100 MG, ADIRO 100 MG GASTRORESISTANT TABLETS EFG, 500 TABLETS
     Dates: start: 20220620

REACTIONS (3)
  - Hyponatraemia [Recovered/Resolved]
  - Anticholinergic syndrome [Recovered/Resolved]
  - Drug interaction [Unknown]

NARRATIVE: CASE EVENT DATE: 20220704
